FAERS Safety Report 23250002 (Version 1)
Quarter: 2023Q4

REPORT INFORMATION
  Report Type: Spontaneous
  Country: US (occurrence: US)
  Receive Date: 20231201
  Receipt Date: 20231201
  Transmission Date: 20240109
  Serious: Yes (Death, Other)
  Sender: FDA-Public Use
  Company Number: US-ENDO-CASE-0047382

PATIENT
  Sex: Female

DRUGS (11)
  1. PERCOCET [Suspect]
     Active Substance: ACETAMINOPHEN\OXYCODONE HYDROCHLORIDE
  2. DIAZEPAM [Suspect]
     Active Substance: DIAZEPAM
  3. ALPRAZOLAM [Suspect]
     Active Substance: ALPRAZOLAM
  4. HYDROCODONE [Suspect]
     Active Substance: HYDROCODONE
  5. VALIUM [Suspect]
     Active Substance: DIAZEPAM
  6. XANAX [Suspect]
     Active Substance: ALPRAZOLAM
  7. TYLENOL [Suspect]
     Active Substance: ACETAMINOPHEN
  8. DEMEROL [Suspect]
     Active Substance: MEPERIDINE HYDROCHLORIDE
  9. TORADOL [Suspect]
     Active Substance: KETOROLAC TROMETHAMINE
  10. MEPERIDINE HYDROCHLORIDE [Suspect]
     Active Substance: MEPERIDINE HYDROCHLORIDE
  11. SOMA [Suspect]
     Active Substance: CARISOPRODOL

REACTIONS (3)
  - Death [Fatal]
  - Overdose [Unknown]
  - Dependence [Unknown]
